FAERS Safety Report 6490436-X (Version None)
Quarter: 2009Q4

REPORT INFORMATION
  Report Type: 
  Country: None (occurrence: None)
  Receive Date: 20091210
  Receipt Date: 20091210
  Transmission Date: 20100525
  Serious: Yes (Hospitalization)
  Sender: FDA-Public Use
  Company Number: None

PATIENT
  Age: 44 Year
  Sex: Female
  Weight: 91.173 kg

DRUGS (1)
  1. REPLAGAL [Suspect]
     Indication: FABRY'S DISEASE
     Dosage: 0.2MG/KG BIWEEKLY IV
     Route: 042
     Dates: start: 20091204, end: 20091204

REACTIONS (2)
  - FLUSHING [None]
  - PHARYNGEAL OEDEMA [None]
